FAERS Safety Report 6439925-4 (Version None)
Quarter: 2009Q4

REPORT INFORMATION
  Report Type: 
  Country: None (occurrence: None)
  Receive Date: 20091112
  Receipt Date: 20091112
  Transmission Date: 20100525
  Serious: No
  Sender: FDA-Public Use
  Company Number: None

PATIENT
  Sex: Female
  Weight: 61.36 kg

DRUGS (3)
  1. CARBOPLATIN [Suspect]
     Dosage: 171 MG
     Dates: start: 20091026, end: 20091026
  2. TAXOL [Suspect]
     Dosage: 73 MG
     Dates: start: 20091026, end: 20091026
  3. MAXZIDE [Concomitant]

REACTIONS (4)
  - FACIAL BONES FRACTURE [None]
  - FALL [None]
  - SUBARACHNOID HAEMORRHAGE [None]
  - SYNCOPE [None]
